FAERS Safety Report 7691080-9 (Version None)
Quarter: 2011Q3

REPORT INFORMATION
  Report Type: 
  Country: None (occurrence: None)
  Receive Date: 20110818
  Receipt Date: 20110811
  Transmission Date: 20111222
  Serious: Yes (Other)
  Sender: FDA-Public Use
  Company Number: BR-ROCHE-795656

PATIENT
  Age: 27 Year
  Sex: Male
  Weight: 100 kg

DRUGS (13)
  1. NIPRIDE [Concomitant]
  2. LOSARTAN [Concomitant]
  3. ZOFRAN [Concomitant]
  4. NEURONTIN [Concomitant]
     Dosage: DRUG NAME REPORTED AS: NEUROTIN
  5. ACETAMINOPHEN W/ CODEINE [Concomitant]
  6. PANTOPRAZOLE [Concomitant]
  7. ROCEPHIN [Suspect]
     Indication: PNEUMONIA
     Dosage: FREQ: EVERY 12 HOUR.
     Route: 042
     Dates: start: 20110801, end: 20110808
  8. NOVALGINA [Concomitant]
  9. DIGESAN [Concomitant]
  10. DIMORF [Concomitant]
  11. ZITHROMAX [Concomitant]
  12. AMITRIPTYLINE HCL [Concomitant]
  13. ENOXAPARIN SODIUM [Concomitant]

REACTIONS (6)
  - NAUSEA [None]
  - LARYNGEAL OEDEMA [None]
  - BRONCHOSPASM [None]
  - HYPERSENSITIVITY [None]
  - ERYTHEMA [None]
  - FACE OEDEMA [None]
